FAERS Safety Report 8767183 (Version 1)
Quarter: 2012Q4

REPORT INFORMATION
  Report Type: 
  Country: US (occurrence: US)
  Receive Date: 20120904
  Receipt Date: 20120904
  Transmission Date: 20130627
  Serious: Yes (Hospitalization)
  Sender: FDA-Public Use
  Company Number: US-GLAXOSMITHKLINE-A0899219A

PATIENT
  Age: 55 Year
  Sex: Female

DRUGS (1)
  1. AVANDIA [Suspect]
     Indication: DIABETES MELLITUS
     Dosage: 4MG Per day
     Route: 048
     Dates: start: 2000, end: 20080501

REACTIONS (5)
  - Splenic artery aneurysm [Not Recovered/Not Resolved]
  - Pain [Unknown]
  - Cardiac hypertrophy [Unknown]
  - Arrhythmia [Unknown]
  - Hypertension [Unknown]
